FAERS Safety Report 9774682 (Version 1)
Quarter: 2013Q4

REPORT INFORMATION
  Report Type: Spontaneous
  Country: US (occurrence: None)
  Receive Date: 20131219
  Receipt Date: 20131219
  Transmission Date: 20140711
  Serious: Yes (Other)
  Sender: FDA-Public Use
  Company Number: None

PATIENT
  Age: 80 None
  Sex: Male
  Weight: 73.6 kg

DRUGS (1)
  1. ACARBOSE [Suspect]
     Route: 048

REACTIONS (1)
  - Delirium [None]
